FAERS Safety Report 17599673 (Version 2)
Quarter: 2020Q2

REPORT INFORMATION
  Report Type: Report from Study
  Country: None (occurrence: US)
  Receive Date: 20200330
  Receipt Date: 20200402
  Transmission Date: 20200713
  Serious: No
  Sender: FDA-Public Use
  Company Number: US-ABBVIE-20K-163-3341774-00

PATIENT
  Age: 77 Year
  Sex: Female

DRUGS (1)
  1. RINVOQ [Suspect]
     Active Substance: UPADACITINIB
     Indication: RHEUMATOID ARTHRITIS
     Route: 048
     Dates: start: 20200120

REACTIONS (3)
  - Skin discolouration [Unknown]
  - Thrombosis [Not Recovered/Not Resolved]
  - Rash papular [Unknown]

NARRATIVE: CASE EVENT DATE: 20200326
